FAERS Safety Report 16050238 (Version 1)
Quarter: 2019Q1

REPORT INFORMATION
  Report Type: Other
  Country: CN (occurrence: CN)
  Receive Date: 20190308
  Receipt Date: 20190308
  Transmission Date: 20190418
  Serious: Yes (Other)
  Sender: FDA-Public Use
  Company Number: CN-DENTSPLY-2019SCDP000117

PATIENT
  Age: 45 Year
  Sex: Female

DRUGS (3)
  1. LIDOCAINE. [Suspect]
     Active Substance: LIDOCAINE
     Indication: ANAESTHESIA
     Dosage: 60 MG, 2 %
  2. DIPROSPAN                         /00008504/ [Suspect]
     Active Substance: BETAMETHASONE DIPROPIONATE
     Indication: PRODUCT USED FOR UNKNOWN INDICATION
     Dosage: 7 MG
  3. NORMAL SALINE [Concomitant]
     Active Substance: SODIUM CHLORIDE
     Indication: PRODUCT USED FOR UNKNOWN INDICATION

REACTIONS (5)
  - Neurotoxicity [Recovered/Resolved]
  - Muscular weakness [Recovered/Resolved]
  - Accidental exposure to product [Recovered/Resolved]
  - Sensory loss [Recovered/Resolved]
  - Incorrect route of product administration [Recovered/Resolved]
